FAERS Safety Report 7909181-6 (Version None)
Quarter: 2011Q4

REPORT INFORMATION
  Report Type: 
  Country: None (occurrence: None)
  Receive Date: 20111111
  Receipt Date: 20110606
  Transmission Date: 20120403
  Serious: No
  Sender: FDA-Public Use
  Company Number: US-GLAXOSMITHKLINE-A0930378A

PATIENT
  Age: 86 Year
  Sex: Male

DRUGS (3)
  1. LASIX [Concomitant]
  2. COREG [Suspect]
     Indication: CARDIAC FAILURE CONGESTIVE
     Dosage: 25MG PER DAY
     Route: 048
     Dates: start: 20101130
  3. COZAAR [Concomitant]

REACTIONS (1)
  - BLOOD PRESSURE FLUCTUATION [None]
